FAERS Safety Report 7236374-6 (Version None)
Quarter: 2011Q1

REPORT INFORMATION
  Report Type: 
  Country: None (occurrence: None)
  Receive Date: 20110120
  Receipt Date: 20110111
  Transmission Date: 20110831
  Serious: Yes (Hospitalization)
  Sender: FDA-Public Use
  Company Number: CA-WATSON-2011-00203

PATIENT
  Age: 43 Year
  Sex: Female

DRUGS (4)
  1. CYCLOPHOSPHAMIDE [Suspect]
     Indication: PRODUCT USED FOR UNKNOWN INDICATION
     Dosage: ^1002.0 MG, 1 EVERY 2 WEEKS^
     Route: 042
  2. ADRIAMYCIN PFS [Suspect]
     Indication: PRODUCT USED FOR UNKNOWN INDICATION
     Dosage: 100 MG, 1 EVERY 2 WEEKS (INJECTION)
     Route: 065
  3. PACLITAXEL [Suspect]
     Indication: PRODUCT USED FOR UNKNOWN INDICATION
     Dosage: ^LIQUID INTRAVENOUS^
     Route: 042
  4. TRELSTAR DEPOT [Suspect]
     Indication: PRODUCT USED FOR UNKNOWN INDICATION
     Dosage: UNK
     Route: 065

REACTIONS (7)
  - ASTHENIA [None]
  - PALPITATIONS [None]
  - PNEUMONIA [None]
  - DYSPNOEA [None]
  - ARRHYTHMIA SUPRAVENTRICULAR [None]
  - PYREXIA [None]
  - COUGH [None]
